FAERS Safety Report 15067428 (Version 1)
Quarter: 2018Q2

REPORT INFORMATION
  Report Type: Spontaneous
  Country: US (occurrence: US)
  Receive Date: 20180606
  Receipt Date: 20180606
  Transmission Date: 20180711
  Serious: Yes (Hospitalization)
  Sender: FDA-Public Use
  Company Number: None

PATIENT
  Age: 43 Year
  Sex: Female
  Weight: 56.7 kg

DRUGS (2)
  1. OCREVUS [Suspect]
     Active Substance: OCRELIZUMAB
     Indication: RELAPSING-REMITTING MULTIPLE SCLEROSIS
     Dosage: ?          OTHER FREQUENCY:EVERY 6 MONTHS;?
     Route: 041
     Dates: start: 20180504, end: 20180518
  2. OCREVUS [Concomitant]
     Active Substance: OCRELIZUMAB
     Dates: start: 20180504, end: 20180518

REACTIONS (15)
  - Nausea [None]
  - Pyrexia [None]
  - Cough [None]
  - Hypotension [None]
  - Sinus congestion [None]
  - Chills [None]
  - Decreased appetite [None]
  - Treatment failure [None]
  - Hyperhidrosis [None]
  - Musculoskeletal stiffness [None]
  - Oropharyngeal pain [None]
  - Tachycardia [None]
  - Headache [None]
  - Photophobia [None]
  - Vomiting [None]

NARRATIVE: CASE EVENT DATE: 20180605
